FAERS Safety Report 7829995-0 (Version None)
Quarter: 2011Q4

REPORT INFORMATION
  Report Type: 
  Country: None (occurrence: None)
  Receive Date: 20111021
  Receipt Date: 20111018
  Transmission Date: 20120403
  Serious: Yes (Hospitalization)
  Sender: FDA-Public Use
  Company Number: US-CEPHALON-2011004992

PATIENT
  Sex: Female
  Weight: 104 kg

DRUGS (2)
  1. ARMODAFINIL [Suspect]
     Indication: BIPOLAR I DISORDER
     Dates: start: 20110831, end: 20110908
  2. ARMODAFINIL [Suspect]
     Route: 048
     Dates: start: 20110909, end: 20110913

REACTIONS (1)
  - TORSADE DE POINTES [None]
